FAERS Safety Report 9912010 (Version 1)
Quarter: 2014Q1

REPORT INFORMATION
  Report Type: Spontaneous
  Country: US (occurrence: US)
  Receive Date: 20140219
  Receipt Date: 20140219
  Transmission Date: 20141002
  Serious: No
  Sender: FDA-Public Use
  Company Number: US-MYLANLABS-PF-2013274061

PATIENT
  Sex: Female

DRUGS (4)
  1. EPIPEN JR [Suspect]
     Dosage: UNK
  2. ALLEGRA [Concomitant]
  3. SINGULAIR [Concomitant]
  4. AVAPRO [Concomitant]

REACTIONS (5)
  - Accidental exposure to product [Recovered/Resolved]
  - Paraesthesia [Not Recovered/Not Resolved]
  - Injury associated with device [None]
  - Expired drug administered [None]
  - Injection site paraesthesia [None]
